FAERS Safety Report 25686735 (Version 1)
Quarter: 2025Q3

REPORT INFORMATION
  Report Type: Spontaneous
  Country: US (occurrence: US)
  Receive Date: 20250816
  Receipt Date: 20250816
  Transmission Date: 20251021
  Serious: Yes (Life-Threatening, Hospitalization)
  Sender: AUROBINDO
  Company Number: US-MLMSERVICE-20250804-PI593303-00252-2

PATIENT
  Age: 52 Year
  Sex: Male

DRUGS (15)
  1. BUPIVACAINE HYDROCHLORIDE [Suspect]
     Active Substance: BUPIVACAINE HYDROCHLORIDE
     Indication: Procedural pain
     Dosage: 6 MILLILITER, EVERY HOUR (INTRA-OP-1/16%)
     Route: 008
  2. BUPIVACAINE HYDROCHLORIDE [Suspect]
     Active Substance: BUPIVACAINE HYDROCHLORIDE
     Dosage: 8 MILLILITER, EVERY HOUR (POD #1, 1/16%)
     Route: 008
  3. BUPIVACAINE HYDROCHLORIDE [Suspect]
     Active Substance: BUPIVACAINE HYDROCHLORIDE
     Dosage: 12 MILLILITER, EVERY HOUR (POD #2, 1/16%)
     Route: 008
  4. BUPIVACAINE HYDROCHLORIDE [Suspect]
     Active Substance: BUPIVACAINE HYDROCHLORIDE
     Dosage: UNK UNK, EVERY HOUR (AT 6?8ML/HR  (IMMEDIATE POST-OP IN PACU))
     Route: 008
  5. HYDROMORPHONE [Suspect]
     Active Substance: HYDROMORPHONE
     Indication: Procedural pain
     Route: 042
  6. OXYCODONE HYDROCHLORIDE [Suspect]
     Active Substance: OXYCODONE HYDROCHLORIDE
     Indication: Procedural pain
     Route: 048
  7. OXYCODONE HYDROCHLORIDE [Suspect]
     Active Substance: OXYCODONE HYDROCHLORIDE
     Route: 048
  8. OXYCODONE HYDROCHLORIDE [Suspect]
     Active Substance: OXYCODONE HYDROCHLORIDE
     Route: 048
  9. FENTANYL [Suspect]
     Active Substance: FENTANYL
     Indication: Procedural pain
     Route: 065
  10. ACETAMINOPHEN [Concomitant]
     Active Substance: ACETAMINOPHEN
     Indication: Procedural pain
     Route: 048
  11. ACETAMINOPHEN [Concomitant]
     Active Substance: ACETAMINOPHEN
     Route: 042
  12. ACETAMINOPHEN [Concomitant]
     Active Substance: ACETAMINOPHEN
     Route: 048
  13. KETAMINE [Concomitant]
     Active Substance: KETAMINE
     Indication: Procedural pain
     Dosage: 0.1 MILLIGRAM/KILOGRAM, EVERY HOUR (INTRA-OP)
     Route: 065
  14. METHOCARBAMOL [Concomitant]
     Active Substance: METHOCARBAMOL
     Indication: Procedural pain
     Route: 065
  15. METHOCARBAMOL [Concomitant]
     Active Substance: METHOCARBAMOL
     Route: 065

REACTIONS (3)
  - Orthostatic hypotension [Recovering/Resolving]
  - Constipation [Unknown]
  - Somnolence [Unknown]
